FAERS Safety Report 6012702-4 (Version None)
Quarter: 2008Q4

REPORT INFORMATION
  Report Type: 
  Country: None (occurrence: None)
  Receive Date: 20081217
  Receipt Date: 20081203
  Transmission Date: 20090506
  Serious: Yes (Hospitalization, Other)
  Sender: FDA-Public Use
  Company Number: PAR_02464_2008

PATIENT
  Age: 48 Year
  Sex: Male

DRUGS (1)
  1. IBUPROFEN [Suspect]
     Indication: DRUG USE FOR UNKNOWN INDICATION
     Dosage: DF

REACTIONS (14)
  - ACUTE HEPATIC FAILURE [None]
  - COAGULOPATHY [None]
  - DRUG TOXICITY [None]
  - ENCEPHALOPATHY [None]
  - HYPOGLYCAEMIA [None]
  - LIVER TRANSPLANT [None]
  - LIVER TRANSPLANT REJECTION [None]
  - NECROSIS [None]
  - PANCREAS INFECTION [None]
  - PANCREATIC ABSCESS [None]
  - PANCREATITIS ACUTE [None]
  - PANCREATITIS NECROTISING [None]
  - POST PROCEDURAL BILE LEAK [None]
  - PSEUDOCYST [None]
